FAERS Safety Report 7026723-6 (Version None)
Quarter: 2010Q4

REPORT INFORMATION
  Report Type: 
  Country: None (occurrence: None)
  Receive Date: 20101004
  Receipt Date: 20100924
  Transmission Date: 20110411
  Serious: Yes (Hospitalization, Other)
  Sender: FDA-Public Use
  Company Number: US-AMGEN-KDL441096

PATIENT
  Sex: Female

DRUGS (1)
  1. ENBREL [Suspect]
     Indication: PSORIATIC ARTHROPATHY
     Route: 058
     Dates: start: 20030709

REACTIONS (6)
  - ARTHRALGIA [None]
  - CARPAL TUNNEL SYNDROME [None]
  - KIDNEY INFECTION [None]
  - NEPHROLITHIASIS [None]
  - THYROID CANCER [None]
  - TRIGGER FINGER [None]
